FAERS Safety Report 6936703-4 (Version None)
Quarter: 2010Q3

REPORT INFORMATION
  Report Type: 
  Country: None (occurrence: None)
  Receive Date: 20100818
  Receipt Date: 20100807
  Transmission Date: 20110219
  Serious: Yes (Hospitalization)
  Sender: FDA-Public Use
  Company Number: IPC201008-000242

PATIENT
  Age: 16 Year
  Sex: Male

DRUGS (2)
  1. CHLOROQUINE PHOSPHATE [Suspect]
     Indication: MALARIA
     Dosage: 10MG/KG/DAY ON THE FIRST DAY; 7.5 MG/KG/DAY ON SECOND DAY; 7.5 MG/KG/DAY ON THIRD DAY
  2. PRIMAQUINE [Suspect]
     Indication: MALARIA
     Dosage: 0.5 MG/KG/DAY FOR 7 DAYS

REACTIONS (5)
  - HAEMODIALYSIS [None]
  - MYOGLOBINURIA [None]
  - RENAL FAILURE ACUTE [None]
  - RENAL TUBULAR NECROSIS [None]
  - RHABDOMYOLYSIS [None]
